FAERS Safety Report 8975004 (Version 3)
Quarter: 2013Q1

REPORT INFORMATION
  Report Type: Spontaneous
  Country: US (occurrence: None)
  Receive Date: 20121211
  Receipt Date: 20130221
  Transmission Date: 20140127
  Serious: Yes (Death, Other)
  Sender: FDA-Public Use
  Company Number: ENTC2012-0533

PATIENT
  Age: 82 Year
  Sex: Female
  Weight: 67.58 kg

DRUGS (3)
  1. STALEVO [Suspect]
     Indication: PARKINSON^S DISEASE
  2. VITAMIN [Concomitant]
  3. POTASSIUM [Concomitant]

REACTIONS (2)
  - Cardiac arrest [None]
  - Coronary artery thrombosis [None]
